FAERS Safety Report 17155689 (Version 1)
Quarter: 2019Q4

REPORT INFORMATION
  Report Type: Spontaneous
  Country: US (occurrence: US)
  Receive Date: 20191215
  Receipt Date: 20191215
  Transmission Date: 20200122
  Serious: No
  Sender: FDA-Public Use
  Company Number: US-ENDO PHARMACEUTICALS INC-2019-106012

PATIENT
  Age: 43 Year
  Sex: Male
  Weight: 90.7 kg

DRUGS (3)
  1. ELIQUIS [Concomitant]
     Active Substance: APIXABAN
     Indication: PRODUCT USED FOR UNKNOWN INDICATION
  2. XIAFLEX [Suspect]
     Active Substance: COLLAGENASE CLOSTRIDIUM HISTOLYTICUM
     Dosage: UNK UNKNOWN, CYCLE ONE; INJECTION TWO
     Route: 026
     Dates: start: 20190603
  3. XIAFLEX [Suspect]
     Active Substance: COLLAGENASE CLOSTRIDIUM HISTOLYTICUM
     Indication: PEYRONIE^S DISEASE
     Dosage: UNK UNKNOWN, CYCLE ONE; INJECTION ONE
     Route: 026
     Dates: start: 20190528

REACTIONS (4)
  - Penile swelling [Recovering/Resolving]
  - Genital contusion [Recovering/Resolving]
  - Scrotal swelling [Recovering/Resolving]
  - Penile contusion [Recovering/Resolving]

NARRATIVE: CASE EVENT DATE: 20190528
